FAERS Safety Report 20098752 (Version 2)
Quarter: 2021Q4

REPORT INFORMATION
  Report Type: Report from Study
  Country: IE (occurrence: IE)
  Receive Date: 20211122
  Receipt Date: 20211213
  Transmission Date: 20220303
  Serious: Yes (Life-Threatening, Hospitalization, Other)
  Sender: FDA-Public Use
  Company Number: IE-002147023-NVSC2021IE252168

PATIENT
  Age: 67 Year
  Sex: Male

DRUGS (2)
  1. CYTARABINE [Suspect]
     Active Substance: CYTARABINE
     Indication: Product used for unknown indication
     Dosage: 2000 MG DAILY
     Route: 065
     Dates: start: 20211021, end: 20211023
  2. RYDAPT [Suspect]
     Active Substance: MIDOSTAURIN
     Indication: Product used for unknown indication
     Dosage: 100 MG DAILY
     Route: 065
     Dates: start: 20211029, end: 20211029

REACTIONS (8)
  - Anaemia [Unknown]
  - Neutropenia [Unknown]
  - White blood cell count decreased [Unknown]
  - Thrombocytopenia [Unknown]
  - Lower gastrointestinal haemorrhage [Not Recovered/Not Resolved]
  - Melaena [Unknown]
  - Blood pressure abnormal [Unknown]
  - Heart rate increased [Unknown]

NARRATIVE: CASE EVENT DATE: 20211030
